FAERS Safety Report 21420607 (Version 1)
Quarter: 2022Q4

REPORT INFORMATION
  Report Type: Report from Study
  Country: US (occurrence: US)
  Receive Date: 20221007
  Receipt Date: 20221007
  Transmission Date: 20230113
  Serious: Yes (Other)
  Sender: FDA-Public Use
  Company Number: US-VERICEL-US-VCEL-22-000666

PATIENT
  Age: 44 Year
  Sex: Female

DRUGS (1)
  1. MACI [Suspect]
     Active Substance: AUTOLOGOUS CULTURED CHONDROCYTES\SUS SCROFA COLLAGEN
     Indication: Product used for unknown indication
     Dosage: UNK
     Route: 050
     Dates: start: 20220307, end: 20220307

REACTIONS (4)
  - Thrombosis [Not Recovered/Not Resolved]
  - Muscle atrophy [Not Recovered/Not Resolved]
  - Joint range of motion decreased [Not Recovered/Not Resolved]
  - Pain [Not Recovered/Not Resolved]

NARRATIVE: CASE EVENT DATE: 20220101
